FAERS Safety Report 4397900-8 (Version None)
Quarter: 2004Q3

REPORT INFORMATION
  Report Type: 
  Country: None (occurrence: None)
  Receive Date: 20040713
  Receipt Date: 20040630
  Transmission Date: 20050211
  Serious: Yes (Other)
  Sender: FDA-Public Use
  Company Number: 2004013492

PATIENT
  Sex: Male

DRUGS (1)
  1. NEURONTIN [Suspect]
     Indication: ILL-DEFINED DISORDER

REACTIONS (13)
  - BIPOLAR DISORDER [None]
  - BRAIN DAMAGE [None]
  - CLOSED HEAD INJURY [None]
  - DEPRESSED LEVEL OF CONSCIOUSNESS [None]
  - DRUG DEPENDENCE [None]
  - DRUG WITHDRAWAL SYNDROME [None]
  - HALLUCINATION, VISUAL [None]
  - INTENTIONAL SELF-INJURY [None]
  - NAUSEA [None]
  - PAIN [None]
  - PSYCHOTIC DISORDER [None]
  - STUPOR [None]
  - SUICIDE ATTEMPT [None]
